FAERS Safety Report 19989968 (Version 3)
Quarter: 2021Q4

REPORT INFORMATION
  Report Type: Spontaneous
  Country: JP (occurrence: JP)
  Receive Date: 20211025
  Receipt Date: 20211119
  Transmission Date: 20220303
  Serious: Yes (Other)
  Sender: FDA-Public Use
  Company Number: JP-AMGEN-JPNSP2021163210

PATIENT
  Age: 71 Year
  Sex: Female

DRUGS (2)
  1. EVENITY [Suspect]
     Active Substance: ROMOSOZUMAB-AQQG
     Indication: Osteoporosis
     Dosage: 210 MILLIGRAM, QMO
     Route: 058
  2. ACTEMRA [Concomitant]
     Active Substance: TOCILIZUMAB
     Dosage: UNK

REACTIONS (2)
  - Fall [Unknown]
  - Pathological fracture [Unknown]
